FAERS Safety Report 11675021 (Version 2)
Quarter: 2015Q4

REPORT INFORMATION
  Report Type: Spontaneous
  Country: US (occurrence: US)
  Receive Date: 20151027
  Receipt Date: 20151104
  Transmission Date: 20160304
  Serious: No
  Sender: FDA-Public Use
  Company Number: US-ELI_LILLY_AND_COMPANY-US201004007230

PATIENT
  Age: 64 Year
  Sex: Female

DRUGS (3)
  1. FORTEO [Suspect]
     Active Substance: TERIPARATIDE
     Indication: OSTEOPOROSIS
     Dosage: 20 UG, DAILY (1/D)
     Dates: start: 20100305
  2. FORTEO [Suspect]
     Active Substance: TERIPARATIDE
     Dosage: 20 UG, DAILY (1/D)
     Dates: end: 201103
  3. BENADRYL [Concomitant]
     Active Substance: DIPHENHYDRAMINE HYDROCHLORIDE
     Indication: HYPERSENSITIVITY
     Dosage: UNK, EACH EVENING
     Dates: start: 20100305

REACTIONS (21)
  - Ocular hyperaemia [Unknown]
  - Nerve compression [Unknown]
  - Feeling abnormal [Unknown]
  - Hypersensitivity [Unknown]
  - Pain [Unknown]
  - Injection site erythema [Unknown]
  - Bone pain [Unknown]
  - Back pain [Unknown]
  - Head injury [Unknown]
  - Injection site bruising [Not Recovered/Not Resolved]
  - Sluggishness [Unknown]
  - Dizziness [Unknown]
  - Muscle spasms [Unknown]
  - Influenza like illness [Unknown]
  - Sciatica [Unknown]
  - Fall [Recovered/Resolved]
  - Musculoskeletal disorder [Unknown]
  - Intentional product misuse [Unknown]
  - Joint injury [Unknown]
  - Pruritus [Unknown]
  - Injection site pain [Not Recovered/Not Resolved]

NARRATIVE: CASE EVENT DATE: 201103
